FAERS Safety Report 5695157-9 (Version None)
Quarter: 2008Q2

REPORT INFORMATION
  Report Type: 
  Country: None (occurrence: None)
  Receive Date: 20080404
  Receipt Date: 20080324
  Transmission Date: 20081010
  Serious: Yes (Other)
  Sender: FDA-Public Use
  Company Number: GB-PFIZER INC-2008026839

PATIENT
  Age: 67 Year
  Sex: Female
  Weight: 65 kg

DRUGS (6)
  1. CHAMPIX [Suspect]
     Indication: SMOKING CESSATION THERAPY
     Route: 048
     Dates: start: 20080215, end: 20080101
  2. BECLOMETHASONE DIPROPIONATE [Concomitant]
     Route: 055
  3. LANSOPRAZOLE [Concomitant]
     Route: 048
  4. PHYLLOCONTIN [Concomitant]
     Route: 048
  5. SALBUTAMOL [Concomitant]
     Route: 055
  6. SALMETEROL [Concomitant]
     Route: 055

REACTIONS (4)
  - ABDOMINAL PAIN [None]
  - DIZZINESS [None]
  - MUSCLE SPASMS [None]
  - VOMITING [None]
